FAERS Safety Report 8995861 (Version 6)
Quarter: 2013Q3

REPORT INFORMATION
  Report Type: Report from Study
  Country: FR (occurrence: FR)
  Receive Date: 20130103
  Receipt Date: 20130701
  Transmission Date: 20140515
  Serious: Yes (Hospitalization)
  Sender: FDA-Public Use
  Company Number: FR-JNJFOC-20121212153

PATIENT
  Age: 14 Year
  Sex: Male
  Weight: 62.5 kg

DRUGS (16)
  1. REMICADE [Suspect]
     Indication: CROHN^S DISEASE
     Dosage: 13TH INFUSION
     Route: 042
     Dates: start: 20121218
  2. REMICADE [Suspect]
     Indication: CROHN^S DISEASE
     Route: 042
     Dates: start: 20110418
  3. REMICADE [Suspect]
     Indication: CROHN^S DISEASE
     Route: 042
     Dates: start: 20120514
  4. REMICADE [Suspect]
     Indication: CROHN^S DISEASE
     Route: 042
     Dates: start: 20120716
  5. REMICADE [Suspect]
     Indication: CROHN^S DISEASE
     Route: 042
     Dates: start: 20120910
  6. REMICADE [Suspect]
     Indication: CROHN^S DISEASE
     Route: 042
     Dates: start: 20121022
  7. REMICADE [Suspect]
     Indication: CROHN^S DISEASE
     Route: 042
     Dates: start: 201105
  8. REMICADE [Suspect]
     Indication: CROHN^S DISEASE
     Route: 042
     Dates: start: 20120123
  9. 6-MERCAPTOPURINE [Suspect]
     Indication: CROHN^S DISEASE
     Route: 065
     Dates: start: 20100301, end: 20120123
  10. 6-MERCAPTOPURINE [Suspect]
     Indication: CROHN^S DISEASE
     Route: 065
     Dates: end: 20121022
  11. ANTIHISTAMINES [Concomitant]
     Indication: PREMEDICATION
     Route: 065
     Dates: start: 20121022
  12. ANTIHISTAMINES [Concomitant]
     Indication: PREMEDICATION
     Route: 065
     Dates: start: 20120716
  13. ANTIHISTAMINES [Concomitant]
     Indication: PREMEDICATION
     Route: 065
     Dates: start: 20120910
  14. STEROIDS NOS [Concomitant]
     Indication: PREMEDICATION
     Route: 065
     Dates: start: 20120716
  15. STEROIDS NOS [Concomitant]
     Indication: PREMEDICATION
     Route: 065
     Dates: start: 20120910
  16. STEROIDS NOS [Concomitant]
     Indication: PREMEDICATION
     Route: 065
     Dates: start: 20121022

REACTIONS (1)
  - Chronic myeloid leukaemia [Not Recovered/Not Resolved]
